FAERS Safety Report 17823983 (Version 1)
Quarter: 2020Q2

REPORT INFORMATION
  Report Type: Spontaneous
  Country: US (occurrence: US)
  Receive Date: 20200523
  Receipt Date: 20200523
  Transmission Date: 20200714
  Serious: Yes (Hospitalization)
  Sender: FDA-Public Use
  Company Number: None

PATIENT
  Age: 48 Year
  Sex: Male
  Weight: 88.2 kg

DRUGS (3)
  1. ACETAMINOPHEN. [Concomitant]
     Active Substance: ACETAMINOPHEN
  2. RITUXIMAB (MOAB C2BB ANTI CD20, CHEIMERIC) (687451) [Suspect]
     Active Substance: RITUXIMAB
     Dates: end: 20200110
  3. VALACYCLOVIR [Concomitant]
     Active Substance: VALACYCLOVIR HYDROCHLORIDE

REACTIONS (2)
  - Pneumonia [None]
  - Febrile neutropenia [None]

NARRATIVE: CASE EVENT DATE: 20200205
